FAERS Safety Report 12368913 (Version 5)
Quarter: 2016Q3

REPORT INFORMATION
  Report Type: Report from Study
  Country: NL (occurrence: NL)
  Receive Date: 20160513
  Receipt Date: 20160930
  Transmission Date: 20161109
  Serious: Yes (Life-Threatening, Hospitalization, Disabling, Other)
  Sender: FDA-Public Use
  Company Number: NL-ABBVIE-16P-114-1626078-00

PATIENT
  Age: 68 Year
  Sex: Female

DRUGS (1)
  1. DUODOPA [Suspect]
     Active Substance: CARBIDOPA\LEVODOPA
     Indication: PARKINSON^S DISEASE
     Dosage: MD 12; CONT DOSE 5.6; ED 3; ND 3.5
     Route: 050
     Dates: start: 20160307

REACTIONS (14)
  - Fatigue [Not Recovered/Not Resolved]
  - Amnesia [Recovered/Resolved]
  - Dysphagia [Not Recovered/Not Resolved]
  - Fall [Recovered/Resolved]
  - Hypokinesia [Recovering/Resolving]
  - Device dislocation [Unknown]
  - Alopecia [Recovering/Resolving]
  - Sensory loss [Not Recovered/Not Resolved]
  - Bedridden [Recovered/Resolved]
  - Speech disorder [Recovered/Resolved]
  - On and off phenomenon [Not Recovered/Not Resolved]
  - Terminal state [Recovered/Resolved]
  - Cerebral infarction [Recovered/Resolved with Sequelae]
  - Activities of daily living impaired [Recovering/Resolving]

NARRATIVE: CASE EVENT DATE: 20160602
